FAERS Safety Report 7066341 (Version 4)
Quarter: 2014Q4

REPORT INFORMATION
  Report Type: Spontaneous
  Country: US (occurrence: US)
  Receive Date: 20090729
  Receipt Date: 20141119
  Transmission Date: 20150529
  Serious: Yes (Other)
  Sender: FDA-Public Use
  Company Number: US-BAYER-200927802NA

PATIENT
  Age: 29 Year
  Sex: Female

DRUGS (7)
  1. PANTOPRAZOLE SODIUM [Concomitant]
     Active Substance: PANTOPRAZOLE SODIUM
  2. XYZAL [Concomitant]
     Active Substance: LEVOCETIRIZINE DIHYDROCHLORIDE
  3. PROCHLORPERAZINE MALEATE. [Concomitant]
     Active Substance: PROCHLORPERAZINE MALEATE
  4. MIRENA [Suspect]
     Active Substance: LEVONORGESTREL
     Indication: CONTRACEPTION
     Dosage: CONTINUOUS
     Route: 015
     Dates: start: 20081001, end: 20091015
  5. CIPRO [Concomitant]
     Active Substance: CIPROFLOXACIN HYDROCHLORIDE
  6. VITAMIN B12 [Concomitant]
     Active Substance: CYANOCOBALAMIN
  7. VIBRAMYCIN [Concomitant]
     Active Substance: DOXYCYCLINE

REACTIONS (9)
  - Device issue [None]
  - Device failure [None]
  - Medical device pain [None]
  - Device dislocation [None]
  - Injury [None]
  - Scar [None]
  - Procedural pain [None]
  - Medical device discomfort [None]
  - Ovarian cyst ruptured [None]

NARRATIVE: CASE EVENT DATE: 2009
